FAERS Safety Report 24443466 (Version 2)
Quarter: 2025Q3

REPORT INFORMATION
  Report Type: Report from Study
  Country: CA (occurrence: CA)
  Receive Date: 20241016
  Receipt Date: 20250917
  Transmission Date: 20251020
  Serious: Yes (Other)
  Sender: TAKEDA
  Company Number: CA-TAKEDA-2021TUS017929

PATIENT
  Sex: Male
  Weight: 79.819 kg

DRUGS (1)
  1. VEDOLIZUMAB [Suspect]
     Active Substance: VEDOLIZUMAB
     Indication: Crohn^s disease

REACTIONS (21)
  - Pyoderma gangrenosum [Unknown]
  - Uveitis [Unknown]
  - Kidney infection [Recovered/Resolved]
  - Pain [Unknown]
  - Abscess [Unknown]
  - Frequent bowel movements [Unknown]
  - Loss of personal independence in daily activities [Unknown]
  - Malaise [Unknown]
  - Diarrhoea [Unknown]
  - Abdominal tenderness [Unknown]
  - Aphthous ulcer [Unknown]
  - Erythema nodosum [Unknown]
  - Fistula [Unknown]
  - General physical health deterioration [Unknown]
  - Stress [Unknown]
  - Skin disorder [Unknown]
  - Abdominal mass [Unknown]
  - Abdominal pain [Unknown]
  - Anal fissure [Unknown]
  - Arthralgia [Unknown]
  - Faeces soft [Unknown]
